FAERS Safety Report 20376150 (Version 1)
Quarter: 2022Q1

REPORT INFORMATION
  Report Type: Spontaneous
  Country: US (occurrence: None)
  Receive Date: 20220125
  Receipt Date: 20220125
  Transmission Date: 20220424
  Serious: No
  Sender: FDA-Public Use
  Company Number: None

PATIENT
  Age: 33 Year
  Sex: Female
  Weight: 51.75 kg

DRUGS (2)
  1. DEXTROAMPHET SACCHARAT, AMPHET ASPARTATE, DEXTROAMPHET SULFATE AND AMP [Suspect]
     Active Substance: AMPHETAMINE ASPARTATE\AMPHETAMINE SULFATE\DEXTROAMPHETAMINE SACCHARATE\DEXTROAMPHETAMINE SULFATE
     Indication: Attention deficit hyperactivity disorder
     Dosage: FREQUENCY : DAILY;?
     Route: 048
     Dates: start: 20220123, end: 20220124
  2. L-THREANINE [Concomitant]

REACTIONS (10)
  - Product substitution issue [None]
  - Tremor [None]
  - Tension [None]
  - Heart rate increased [None]
  - Irritability [None]
  - Anxiety [None]
  - Headache [None]
  - Abdominal discomfort [None]
  - Disturbance in attention [None]
  - Therapy non-responder [None]

NARRATIVE: CASE EVENT DATE: 20220124
